FAERS Safety Report 4974066-4 (Version None)
Quarter: 2006Q2

REPORT INFORMATION
  Report Type: 
  Country: None (occurrence: None)
  Receive Date: 20060417
  Receipt Date: 20060413
  Transmission Date: 20061013
  Serious: Yes (Other)
  Sender: FDA-Public Use
  Company Number: US-GLAXOSMITHKLINE-A0601660A

PATIENT
  Age: 78 Year
  Sex: Male

DRUGS (9)
  1. COREG [Suspect]
     Dosage: 37.5MG PER DAY
     Route: 048
     Dates: start: 20051119
  2. LIPITOR [Concomitant]
  3. COUMADIN [Concomitant]
  4. SINGULAIR [Concomitant]
  5. LASIX [Concomitant]
  6. MICARDIS [Concomitant]
  7. FLONASE [Concomitant]
  8. ADVAIR DISKUS 100/50 [Concomitant]
  9. EXTRA STRENGTH TYLENOL [Concomitant]

REACTIONS (4)
  - BLINDNESS UNILATERAL [None]
  - FATIGUE [None]
  - MUSCULAR WEAKNESS [None]
  - OCULAR MYASTHENIA [None]
